FAERS Safety Report 4371717-2 (Version None)
Quarter: 2004Q2

REPORT INFORMATION
  Report Type: 
  Country: None (occurrence: None)
  Receive Date: 20040602
  Receipt Date: 20040518
  Transmission Date: 20050107
  Serious: Yes (Disabling, Other)
  Sender: FDA-Public Use
  Company Number: 2004214440FI

PATIENT
  Sex: Male

DRUGS (1)
  1. BEXTRA [Suspect]
     Indication: PAIN
     Dosage: 40 MG, QD, ORAL
     Route: 048
     Dates: start: 20040505, end: 20040505

REACTIONS (3)
  - DYSPEPSIA [None]
  - HOARSENESS [None]
  - THROAT IRRITATION [None]
